FAERS Safety Report 17846144 (Version 3)
Quarter: 2020Q3

REPORT INFORMATION
  Report Type: Spontaneous
  Country: DE (occurrence: DE)
  Receive Date: 20200601
  Receipt Date: 20200707
  Transmission Date: 20201103
  Serious: Yes (Hospitalization)
  Sender: FDA-Public Use
  Company Number: NVSC2020DE150793

PATIENT
  Sex: Female
  Weight: 59 kg

DRUGS (2)
  1. GILENYA [Suspect]
     Active Substance: FINGOLIMOD HYDROCHLORIDE
     Indication: MULTIPLE SCLEROSIS
     Dosage: UNK
     Route: 065
     Dates: start: 201308
  2. DICLOFENAC [Concomitant]
     Active Substance: DICLOFENAC
     Indication: PAIN
     Dosage: UNK, PRN
     Route: 065

REACTIONS (3)
  - Metastases to soft tissue [Recovering/Resolving]
  - Lung neoplasm malignant [Not Recovered/Not Resolved]
  - Metastases to bone [Recovering/Resolving]

NARRATIVE: CASE EVENT DATE: 20200326
